FAERS Safety Report 25861096 (Version 1)
Quarter: 2025Q3

REPORT INFORMATION
  Report Type: Spontaneous
  Country: US (occurrence: US)
  Receive Date: 20250929
  Receipt Date: 20250929
  Transmission Date: 20251020
  Serious: No
  Sender: SANOFI AVENTIS
  Company Number: US-SANOFI-02669503

PATIENT
  Sex: Female

DRUGS (1)
  1. DUPIXENT [Suspect]
     Active Substance: DUPILUMAB
     Indication: Dermatitis atopic

REACTIONS (7)
  - Ocular hyperaemia [Unknown]
  - Visual impairment [Unknown]
  - Glare [Unknown]
  - Conjunctivitis [Unknown]
  - Eye irritation [Unknown]
  - Eye pain [Unknown]
  - Eye inflammation [Unknown]
